FAERS Safety Report 8081106-5 (Version None)
Quarter: 2012Q1

REPORT INFORMATION
  Report Type: 
  Country: None (occurrence: None)
  Receive Date: 20120130
  Receipt Date: 20120125
  Transmission Date: 20120608
  Serious: Yes (Other)
  Sender: FDA-Public Use
  Company Number: US-GLAXOSMITHKLINE-A0814534A

PATIENT
  Sex: Female
  Weight: 122.3 kg

DRUGS (7)
  1. GLUCOPHAGE [Concomitant]
  2. SYNTHROID [Concomitant]
  3. INSULIN [Concomitant]
  4. VYTORIN [Concomitant]
  5. DIOVAN HCT [Concomitant]
  6. SULAR [Concomitant]
  7. AVANDIA [Suspect]
     Indication: TYPE 2 DIABETES MELLITUS
     Dosage: 8MG PER DAY
     Route: 048
     Dates: start: 20000201, end: 20070101

REACTIONS (1)
  - MYOCARDIAL INFARCTION [None]
